FAERS Safety Report 12735806 (Version 3)
Quarter: 2016Q4

REPORT INFORMATION
  Report Type: Spontaneous
  Country: JP (occurrence: JP)
  Receive Date: 20160912
  Receipt Date: 20161019
  Transmission Date: 20170207
  Serious: Yes (Other)
  Sender: FDA-Public Use
  Company Number: JP-009507513-1609JPN002093

PATIENT
  Age: 84 Year
  Sex: Female

DRUGS (2)
  1. RISPERIDONE. [Concomitant]
     Active Substance: RISPERIDONE
     Dosage: DAILY DOSAGE UNKNOWN
     Route: 048
  2. BELSOMRA [Suspect]
     Active Substance: SUVOREXANT
     Indication: MIDDLE INSOMNIA
     Dosage: 15 MG, UNK
     Route: 048
     Dates: start: 20160830, end: 20160831

REACTIONS (3)
  - Agitation [Unknown]
  - Blood pressure decreased [Recovered/Resolved]
  - Somnolence [Recovered/Resolved]

NARRATIVE: CASE EVENT DATE: 20160831
